FAERS Safety Report 7707374-4 (Version None)
Quarter: 2011Q3

REPORT INFORMATION
  Report Type: 
  Country: None (occurrence: None)
  Receive Date: 20110824
  Receipt Date: 20110818
  Transmission Date: 20111222
  Serious: Yes (Hospitalization)
  Sender: FDA-Public Use
  Company Number: US-B.I. PHARMACEUTICALS,INC./RIDGEFIELD-2011-BP-20328BP

PATIENT
  Age: 75 Year
  Sex: Male

DRUGS (9)
  1. PLAVIX [Concomitant]
  2. ALBUTEROL SULFATE AUTOHALER [Concomitant]
  3. NITROGYLCERIN [Concomitant]
  4. FUROSEMIDE [Concomitant]
  5. RANEXA [Concomitant]
  6. PRADAXA [Suspect]
     Indication: ATRIAL FIBRILLATION
     Dosage: 150 MG
     Route: 048
     Dates: end: 20110801
  7. ADVAIR DISKUS 100/50 [Concomitant]
  8. MIRAPEX [Suspect]
  9. LISINOPRIL [Concomitant]

REACTIONS (1)
  - RASH [None]
